FAERS Safety Report 24062030 (Version 1)
Quarter: 2024Q3

REPORT INFORMATION
  Report Type: Spontaneous
  Country: IT (occurrence: IT)
  Receive Date: 20240708
  Receipt Date: 20240708
  Transmission Date: 20241017
  Serious: Yes (Hospitalization)
  Sender: NOVARTIS
  Company Number: None

PATIENT
  Age: 40 Year
  Sex: Female

DRUGS (1)
  1. KESIMPTA [Suspect]
     Active Substance: OFATUMUMAB
     Indication: Multiple sclerosis
     Dosage: UNK (20 MG S.N. 1 FL AL MESE)
     Route: 058
     Dates: start: 202211

REACTIONS (1)
  - Viral rash [Recovering/Resolving]

NARRATIVE: CASE EVENT DATE: 20240622
